FAERS Safety Report 14549008 (Version 1)
Quarter: 2018Q1

REPORT INFORMATION
  Report Type: Spontaneous
  Country: US (occurrence: US)
  Receive Date: 20180219
  Receipt Date: 20180219
  Transmission Date: 20180509
  Serious: Yes (Hospitalization, Other)
  Sender: FDA-Public Use
  Company Number: US-BAYER-2018-026823

PATIENT
  Age: 34 Year
  Sex: Female
  Weight: 40 kg

DRUGS (13)
  1. MOXIFLOXACIN ORAL [Suspect]
     Active Substance: MOXIFLOXACIN
     Indication: TUBERCULOSIS
     Dosage: UNK
     Dates: start: 20170531
  2. LINEZOLID. [Suspect]
     Active Substance: LINEZOLID
     Indication: TUBERCULOSIS
     Dosage: 600 MG, QD
     Route: 048
     Dates: start: 20170831, end: 20171210
  3. MECLIZINE [Concomitant]
     Active Substance: MECLIZINE HYDROCHLORIDE
     Indication: VOMITING
     Dosage: 50 MG, UNK
     Dates: start: 20160831
  4. OMEPRAZOLE. [Concomitant]
     Active Substance: OMEPRAZOLE
     Indication: HYPERCHLORHYDRIA
     Dosage: 20 MG, UNK
     Dates: start: 20160831
  5. INSULIN [Concomitant]
     Active Substance: INSULIN NOS
     Indication: DIABETES MELLITUS
  6. ETHIONAMIDE [Suspect]
     Active Substance: ETHIONAMIDE
     Indication: TUBERCULOSIS
     Dosage: 500 MG, QD
     Route: 048
     Dates: start: 20170831, end: 20171210
  7. CYCLOSERINE. [Suspect]
     Active Substance: CYCLOSERINE
     Indication: TUBERCULOSIS
     Dosage: UNK
     Dates: start: 20170531
  8. AMOXICILLIN W/CLAVULANIC ACID [Suspect]
     Active Substance: AMOXICILLIN\CLAVULANIC ACID
     Dosage: UNK
     Dates: start: 20170531
  9. PYRIDOXINE [Concomitant]
     Active Substance: PYRIDOXINE
     Indication: PROPHYLAXIS
     Dosage: 20 MG, UNK
     Dates: start: 20160831
  10. ETHIONAMIDE [Suspect]
     Active Substance: ETHIONAMIDE
     Indication: TUBERCULOSIS
     Dosage: UNK
     Dates: start: 20170531
  11. KANAMYCIN [Suspect]
     Active Substance: KANAMYCIN\KANAMYCIN A SULFATE
     Dosage: UNK
     Dates: start: 20170531
  12. MOXIFLOXACIN ORAL [Suspect]
     Active Substance: MOXIFLOXACIN
     Indication: TUBERCULOSIS
     Dosage: 400 MG, QD
     Route: 048
     Dates: start: 20170831, end: 20171210
  13. CYCLOSERINE. [Suspect]
     Active Substance: CYCLOSERINE
     Indication: TUBERCULOSIS
     Dosage: 500 MG, QD
     Route: 048
     Dates: start: 20170831, end: 20171210

REACTIONS (6)
  - Mixed deafness [None]
  - Arthralgia [Recovered/Resolved]
  - Nausea [Recovered/Resolved]
  - Pulmonary fibrosis [None]
  - Asthenia [Recovered/Resolved]
  - Hepatic enzyme increased [Recovering/Resolving]

NARRATIVE: CASE EVENT DATE: 2017
